FAERS Safety Report 9006612 (Version 1)
Quarter: 2013Q1

REPORT INFORMATION
  Report Type: Report from Study
  Country: AR (occurrence: AR)
  Receive Date: 20130110
  Receipt Date: 20130110
  Transmission Date: 20140127
  Serious: Yes (Other)
  Sender: FDA-Public Use
  Company Number: AR-PFIZER INC-2013002204

PATIENT
  Age: 31 Year
  Sex: Female

DRUGS (8)
  1. RIFAMPICIN [Suspect]
     Indication: TUBERCULOSIS
     Dosage: UNK
  2. RIFAMPICIN [Suspect]
     Indication: TUBERCULOSIS
  3. ISONIAZID [Concomitant]
     Indication: TUBERCULOSIS
     Dosage: UNK
  4. ISONIAZID [Concomitant]
     Indication: TUBERCULOSIS
  5. PYRAZINAMIDE [Concomitant]
     Indication: TUBERCULOSIS
     Dosage: UNK
  6. PYRAZINAMIDE [Concomitant]
     Indication: TUBERCULOSIS
  7. ETHAMBUTOL [Concomitant]
     Indication: TUBERCULOSIS
     Dosage: UNK
  8. ETHAMBUTOL [Concomitant]
     Indication: TUBERCULOSIS

REACTIONS (2)
  - Drug reaction with eosinophilia and systemic symptoms [Recovered/Resolved]
  - Hepatitis toxic [Unknown]
